FAERS Safety Report 8004527-5 (Version None)
Quarter: 2011Q4

REPORT INFORMATION
  Report Type: 
  Country: None (occurrence: None)
  Receive Date: 20111223
  Receipt Date: 20111221
  Transmission Date: 20120403
  Serious: Yes (Other)
  Sender: FDA-Public Use
  Company Number: NL-GENZYME-CLOF-1001934

PATIENT
  Sex: Male
  Weight: 66 kg

DRUGS (29)
  1. NORFLOXACIN [Concomitant]
     Indication: PROPHYLAXIS
     Dosage: 400 MG, BID
     Route: 048
     Dates: start: 20111028
  2. VALACICLOVIR [Concomitant]
     Indication: PROPHYLAXIS
     Dosage: 500 MG, BID
     Route: 048
     Dates: start: 20111101
  3. AMPHOTERICIN B [Concomitant]
     Indication: PRODUCT USED FOR UNKNOWN INDICATION
     Dosage: 500 MG, TID
     Route: 048
     Dates: start: 20111028, end: 20111125
  4. AMPHOTERICIN B [Concomitant]
     Indication: PRODUCT USED FOR UNKNOWN INDICATION
     Dosage: 100 MG, UNK
     Route: 042
     Dates: start: 20111125, end: 20111128
  5. CEFTAZIDIME [Concomitant]
     Indication: PRODUCT USED FOR UNKNOWN INDICATION
     Dosage: 200 MG, TID
     Route: 042
     Dates: start: 20111029, end: 20111109
  6. FUROSEMIDE [Concomitant]
     Indication: PRODUCT USED FOR UNKNOWN INDICATION
     Dosage: 20 MG, UNK
     Route: 051
     Dates: start: 20111111, end: 20111111
  7. FUROSEMIDE [Concomitant]
     Dosage: 20 MG, UNK
     Route: 051
     Dates: start: 20111118, end: 20111118
  8. PREDNISOLONE [Concomitant]
     Indication: PRODUCT USED FOR UNKNOWN INDICATION
     Dosage: 20 MG, QD
     Route: 048
     Dates: start: 20111109, end: 20111114
  9. PREDNISOLONE [Concomitant]
     Dosage: 25 MG, UNK
     Route: 051
     Dates: start: 20111127, end: 20111127
  10. VANCOMYCIN HYCHLORIDE [Concomitant]
     Dosage: 1000 MG, BID
     Route: 042
     Dates: start: 20111121, end: 20111128
  11. VORICONAZOLE [Concomitant]
     Indication: INFECTION
     Dosage: 200 MG, BID
     Route: 042
     Dates: start: 20111118, end: 20111123
  12. VORICONAZOLE [Concomitant]
     Dosage: 200 MG, BID
     Route: 048
     Dates: start: 20111123, end: 20111125
  13. ESOMEPRAZOLE MAGNESIUM [Concomitant]
     Indication: PROPHYLAXIS
     Dosage: 40 MG, QD
     Route: 048
     Dates: start: 20111104
  14. ITRACONAZOLE [Concomitant]
     Indication: PROPHYLAXIS
     Dosage: 200 MG, QD
     Route: 048
     Dates: start: 20111028, end: 20111118
  15. PREDNISOLONE [Concomitant]
     Dosage: 5 MG, QD
     Route: 048
     Dates: start: 20111108, end: 20111114
  16. ESOMEPRAZOLE MAGNESIUM [Concomitant]
     Dosage: 40 MG, CONTINUOUS
     Route: 042
     Dates: start: 20111130, end: 20111130
  17. CYTARABINE [Suspect]
     Indication: ACUTE LEUKAEMIA
     Dosage: 360 MG, UNK
     Route: 042
     Dates: start: 20111102, end: 20111108
  18. PYRIDOXINE HCL [Concomitant]
     Indication: PRODUCT USED FOR UNKNOWN INDICATION
     Dosage: 20 MG, QD
     Route: 048
     Dates: start: 20111117
  19. ALLOPURINOL [Concomitant]
     Indication: PRODUCT USED FOR UNKNOWN INDICATION
     Dosage: 300 MG, QD
     Route: 048
     Dates: start: 20111028, end: 20111107
  20. EVOLTRA [Suspect]
     Indication: ACUTE LEUKAEMIA
     Dosage: 18 MG, UNK
     Route: 042
     Dates: start: 20111102, end: 20111106
  21. ISONIAZID [Concomitant]
     Indication: ANTIBIOTIC PROPHYLAXIS
     Dosage: 300 MG, QD
     Route: 048
     Dates: start: 20111101
  22. CASPOFUNGIN ACETATE [Concomitant]
     Indication: INFECTION
     Dosage: 50 MG, QD
     Route: 042
     Dates: start: 20111128
  23. CLEMASTINE FUMARATE [Concomitant]
     Indication: PRODUCT USED FOR UNKNOWN INDICATION
     Dosage: 1 MG, UNK
     Route: 048
     Dates: start: 20111110, end: 20111118
  24. IDARUBICIN HCL [Suspect]
     Indication: ACUTE LEUKAEMIA
     Dosage: 22 MG, UNK
     Route: 042
     Dates: start: 20111102, end: 20111104
  25. COTRIM [Concomitant]
     Indication: PROPHYLAXIS
     Dosage: 80/400 MG QD
     Route: 048
     Dates: start: 20111101
  26. CASPOFUNGIN ACETATE [Concomitant]
     Dosage: 70 MG, UNK
     Route: 042
     Dates: start: 20111128, end: 20111128
  27. CLEMASTINE FUMARATE [Concomitant]
     Dosage: 2 MG, QD
     Route: 051
     Dates: start: 20111127, end: 20111127
  28. FUROSEMIDE [Concomitant]
     Dosage: 20 MG, UNK
     Route: 051
     Dates: start: 20111127, end: 20111127
  29. VANCOMYCIN HYCHLORIDE [Concomitant]
     Indication: INFECTION
     Dosage: 1000 MG, BID
     Route: 042
     Dates: start: 20111102, end: 20111112

REACTIONS (1)
  - DISSEMINATED INTRAVASCULAR COAGULATION [None]
